FAERS Safety Report 7349926 (Version 3)
Quarter: 2014Q2

REPORT INFORMATION
  Report Type: Report from Study
  Country: US (occurrence: US)
  Receive Date: 20100409
  Receipt Date: 20140617
  Transmission Date: 20141212
  Serious: Yes (Hospitalization)
  Sender: FDA-Public Use
  Company Number: PHHY2010US20688

PATIENT
  Age: 9 Year
  Sex: Female
  Weight: 22 kg

DRUGS (18)
  1. MYFORTIC [Suspect]
     Indication: PROPHYLAXIS AGAINST TRANSPLANT REJECTION
     Dosage: 360 MG, DAILY
     Route: 048
     Dates: start: 20090121
  2. ENAPRIL ^EXCELL^ [Concomitant]
     Indication: HYPERTENSION
     Dosage: 5 MG, DAILY
     Route: 048
     Dates: start: 20011015
  3. ENAPRIL ^EXCELL^ [Concomitant]
     Indication: PROTEINURIA
  4. HECTOROL [Concomitant]
     Indication: BLOOD IRON DECREASED
     Dosage: 2 UG, DAILY
     Dates: start: 20011015
  5. NIFEDIPINE [Concomitant]
     Indication: HYPERTENSION
     Dosage: 10 MG, PRN
     Dates: start: 20090709
  6. NU-IRON [Concomitant]
     Indication: BLOOD IRON DECREASED
     Dosage: 300 MG, DAILY
     Route: 048
     Dates: start: 20090709
  7. LASIX [Concomitant]
     Indication: OEDEMA
     Dosage: 20 MG, DAILY
     Route: 048
     Dates: start: 20071003
  8. PREDNISONE [Concomitant]
     Indication: IMMUNOSUPPRESSION
     Dosage: 5 MG, DAILY
     Route: 048
     Dates: start: 20090820
  9. PREDNISONE [Concomitant]
     Indication: PROPHYLAXIS AGAINST TRANSPLANT REJECTION
  10. EPOGEN [Concomitant]
     Indication: ANAEMIA
     Dosage: 4000 U, UNK
     Route: 065
     Dates: start: 20011015, end: 20100624
  11. LIPITOR [Concomitant]
     Indication: BLOOD CHOLESTEROL INCREASED
     Dosage: 20 MG, DAILY
     Route: 048
     Dates: start: 20011015
  12. LIPITOR [Concomitant]
     Indication: HYPERLIPIDAEMIA
  13. PRILOSEC [Concomitant]
     Indication: GASTROOESOPHAGEAL REFLUX DISEASE
     Dosage: 20 MG, DAILY
     Route: 048
     Dates: start: 20080626
  14. SAIZEN [Concomitant]
     Indication: BLOOD GROWTH HORMONE DECREASED
     Dosage: 8.8 MG, DAILY
     Route: 065
     Dates: start: 20090215
  15. PROGRAF [Concomitant]
     Indication: IMMUNOSUPPRESSION
     Dosage: 0.5 MG, DAILY
     Route: 048
     Dates: start: 20071003
  16. PROGRAF [Concomitant]
     Indication: PROPHYLAXIS AGAINST TRANSPLANT REJECTION
  17. ASPIRIN [Concomitant]
     Indication: CARDIOVASCULAR EVENT PROPHYLAXIS
     Dosage: 81 MG, DAILY
     Dates: start: 20100111
  18. RENVELA [Concomitant]
     Indication: BLOOD PHOSPHORUS INCREASED
     Dosage: 800 MG, UNK
     Dates: start: 20100316

REACTIONS (3)
  - H1N1 influenza [Unknown]
  - Gastritis [Unknown]
  - Kidney transplant rejection [Not Recovered/Not Resolved]
